FAERS Safety Report 22169844 (Version 1)
Quarter: 2023Q2

REPORT INFORMATION
  Report Type: Other
  Country: CN (occurrence: CN)
  Receive Date: 20230404
  Receipt Date: 20230404
  Transmission Date: 20230722
  Serious: Yes (Hospitalization)
  Sender: FDA-Public Use
  Company Number: CN-GE HEALTHCARE-2023CSU002286

PATIENT
  Age: 39 Year
  Sex: Female
  Weight: 52 kg

DRUGS (5)
  1. OMNIPAQUE [Suspect]
     Active Substance: IOHEXOL
     Indication: Computerised tomogram abdomen
     Dosage: 70 ML (AT A RATE OF 2.8 ML/S), SINGLE
     Route: 041
     Dates: start: 20230324, end: 20230324
  2. OMNIPAQUE [Suspect]
     Active Substance: IOHEXOL
     Indication: Spleen disorder
  3. SODIUM CHLORIDE [Concomitant]
     Active Substance: SODIUM CHLORIDE
     Indication: Computerised tomogram abdomen
     Dosage: 21 ML, SINGLE
     Route: 041
     Dates: start: 20230324, end: 20230324
  4. SODIUM CHLORIDE [Concomitant]
     Active Substance: SODIUM CHLORIDE
     Indication: Catheterisation venous
     Dosage: 30 ML, SINGLE
     Route: 041
     Dates: start: 20230324, end: 20230324
  5. SODIUM CHLORIDE [Concomitant]
     Active Substance: SODIUM CHLORIDE
     Indication: Catheter management

REACTIONS (6)
  - Sneezing [Recovered/Resolved]
  - Tachypnoea [Recovered/Resolved]
  - Sensation of foreign body [Recovered/Resolved]
  - Flushing [Recovered/Resolved]
  - Swelling [Recovered/Resolved]
  - Dyspnoea [Recovered/Resolved]

NARRATIVE: CASE EVENT DATE: 20230324
